FAERS Safety Report 21609584 (Version 1)
Quarter: 2022Q4

REPORT INFORMATION
  Report Type: Spontaneous
  Country: FR (occurrence: FR)
  Receive Date: 20221117
  Receipt Date: 20221117
  Transmission Date: 20230112
  Serious: Yes (Other)
  Sender: FDA-Public Use
  Company Number: None

PATIENT
  Age: 58 Year
  Sex: Female
  Weight: 94 kg

DRUGS (3)
  1. ELOXATIN [Suspect]
     Active Substance: OXALIPLATIN
     Indication: Colon cancer
     Dosage: 130 MG/M2, Q3W
     Route: 040
     Dates: start: 201406, end: 2014
  2. XELODA [Suspect]
     Active Substance: CAPECITABINE
     Indication: Colon cancer
     Dosage: 2500MG/M2 FOR 14 DAYS OVER 3 WEEKS
     Route: 048
     Dates: start: 201312, end: 201403
  3. XELODA [Suspect]
     Active Substance: CAPECITABINE
     Dosage: 2000MG/M2 FOR 14 DAYS OVER 3 WEEKS
     Route: 048
     Dates: start: 201406, end: 2014

REACTIONS (1)
  - Cognitive disorder [Not Recovered/Not Resolved]

NARRATIVE: CASE EVENT DATE: 20140101
